FAERS Safety Report 4411956-5 (Version None)
Quarter: 2004Q2

REPORT INFORMATION
  Report Type: 
  Country: None (occurrence: None)
  Receive Date: 20040630
  Receipt Date: 20040323
  Transmission Date: 20050107
  Serious: No
  Sender: FDA-Public Use
  Company Number: 04P-163-0254539-00

PATIENT
  Age: 77 Year
  Sex: Male
  Weight: 81.6475 kg

DRUGS (7)
  1. HUMIRA [Suspect]
     Indication: RHEUMATOID ARTHRITIS
     Dosage: 40 MG, 1 IN 2 WK, SUBCUTANEOUS
     Route: 058
     Dates: start: 20040320
  2. DILTIAZEM HYDROCHLORIDE [Concomitant]
  3. PAROXETINE HYDROCHLORIDE [Concomitant]
  4. FOLIC ACID [Concomitant]
  5. PREDNISONE [Concomitant]
  6. ALBUTEROL SULFATE [Concomitant]
  7. IPATROPIUM BROMIDE [Concomitant]

REACTIONS (3)
  - CONDITION AGGRAVATED [None]
  - JOINT SWELLING [None]
  - OEDEMA PERIPHERAL [None]
